FAERS Safety Report 18126624 (Version 2)
Quarter: 2020Q3

REPORT INFORMATION
  Report Type: Report from Study
  Country: BR (occurrence: BR)
  Receive Date: 20200809
  Receipt Date: 20200915
  Transmission Date: 20201103
  Serious: Yes (Other)
  Sender: FDA-Public Use
  Company Number: PHHY2018BR005425

PATIENT
  Age: 45 Year
  Sex: Female
  Weight: 76 kg

DRUGS (3)
  1. COSENTYX [Suspect]
     Active Substance: SECUKINUMAB
     Indication: PSORIASIS
     Dosage: 300 UNK, QMO
     Route: 058
     Dates: start: 20180213
  2. COSENTYX [Suspect]
     Active Substance: SECUKINUMAB
     Dosage: 300 UNK, QMO
     Route: 058
     Dates: start: 20180505
  3. COSENTYX [Suspect]
     Active Substance: SECUKINUMAB
     Indication: PSORIATIC ARTHROPATHY
     Dosage: 300 MG, QW
     Route: 058
     Dates: start: 201801

REACTIONS (12)
  - Malaise [Not Recovered/Not Resolved]
  - Peripheral swelling [Not Recovered/Not Resolved]
  - Drug ineffective [Unknown]
  - Arthralgia [Not Recovered/Not Resolved]
  - Pustular psoriasis [Not Recovered/Not Resolved]
  - Pain in extremity [Not Recovered/Not Resolved]
  - Joint swelling [Not Recovered/Not Resolved]
  - Skin swelling [Not Recovered/Not Resolved]
  - COVID-19 [Not Recovered/Not Resolved]
  - Pulmonary embolism [Recovered/Resolved]
  - Paraesthesia [Unknown]
  - Pustule [Not Recovered/Not Resolved]

NARRATIVE: CASE EVENT DATE: 20200607
